FAERS Safety Report 9160616 (Version 1)
Quarter: 2013Q1

REPORT INFORMATION
  Report Type: Spontaneous
  Country: DK (occurrence: None)
  Receive Date: 20130219
  Receipt Date: 20130219
  Transmission Date: 20140127
  Serious: Yes (Other)
  Sender: FDA-Public Use
  Company Number: FK201300419

PATIENT
  Age: 57 Year
  Sex: Female

DRUGS (8)
  1. OXALIPLATIN (MANUFACTURER UNKNOWN) (OXALIPLATIN) (OXALIPLATIN) [Suspect]
  2. HERCEPTIN [Suspect]
  3. XELODA [Suspect]
  4. TAXOL [Suspect]
  5. ARIMIDEX [Suspect]
  6. ZOLADEX [Suspect]
  7. FASLODEX [Suspect]
     Route: 042
  8. VINORELBINE [Suspect]
     Dates: start: 20121026

REACTIONS (2)
  - Metastases to liver [None]
  - Cardiotoxicity [None]
